FAERS Safety Report 6200790-1 (Version None)
Quarter: 2009Q2

REPORT INFORMATION
  Report Type: 
  Country: None (occurrence: None)
  Receive Date: 20090522
  Receipt Date: 20080828
  Transmission Date: 20091009
  Serious: No
  Sender: FDA-Public Use
  Company Number: US-ALEXION-A200700128

PATIENT
  Sex: Female
  Weight: 65.76 kg

DRUGS (32)
  1. SOLIRIS [Suspect]
     Indication: PAROXYSMAL NOCTURNAL HAEMOGLOBINURIA
     Dosage: 600 MG, SINGLE
     Route: 042
     Dates: start: 20071119, end: 20071119
  2. SOLIRIS [Suspect]
     Dosage: 600 MG, SINGLE
     Route: 042
     Dates: start: 20071126, end: 20071126
  3. SOLIRIS [Suspect]
     Dosage: 600 MG, SINGLE
     Route: 042
     Dates: start: 20071203, end: 20071203
  4. SOLIRIS [Suspect]
     Dosage: 600 MG, SINGLE
     Route: 042
     Dates: start: 20071210, end: 20071210
  5. SOLIRIS [Suspect]
     Dosage: 900 MG, SINGLE
     Route: 042
     Dates: start: 20071219, end: 20071219
  6. SOLIRIS [Suspect]
     Dosage: 900 MG, SINGLE
     Route: 042
     Dates: start: 20080102, end: 20080102
  7. SOLIRIS [Suspect]
     Dosage: 900 MG, SINGLE
     Route: 042
     Dates: start: 20080116, end: 20080116
  8. SOLIRIS [Suspect]
     Dosage: 900 MG, SINGLE
     Route: 042
     Dates: start: 20080130, end: 20080130
  9. SOLIRIS [Suspect]
     Dosage: 900 MG, SINGLE
     Route: 042
     Dates: start: 20080213, end: 20080213
  10. SOLIRIS [Suspect]
     Dosage: 900 MG, SINGLE
     Route: 042
     Dates: start: 20080227, end: 20080227
  11. SOLIRIS [Suspect]
     Dosage: 900 MG, SINGLE
     Route: 042
     Dates: start: 20080312, end: 20080312
  12. SOLIRIS [Suspect]
     Dosage: 900 MG, SINGLE
     Route: 042
     Dates: start: 20080326, end: 20080326
  13. SOLIRIS [Suspect]
     Dosage: 900 MG, SINGLE
     Route: 042
     Dates: start: 20080407, end: 20080407
  14. SOLIRIS [Suspect]
     Dosage: 900 MG, SINGLE
     Route: 042
     Dates: start: 20080423, end: 20080423
  15. SOLIRIS [Suspect]
     Dosage: 900 MG, SINGLE
     Route: 042
     Dates: start: 20080507, end: 20080507
  16. SOLIRIS [Suspect]
     Dosage: 900 MG, SINGLE
     Route: 042
     Dates: start: 20080521, end: 20080521
  17. SOLIRIS [Suspect]
     Dosage: 900 MG, SINGLE
     Route: 042
     Dates: start: 20080604, end: 20080604
  18. SOLIRIS [Suspect]
     Dosage: 900 MG, SINGLE
     Route: 042
     Dates: start: 20080618, end: 20080618
  19. SOLIRIS [Suspect]
     Dosage: 900 MG, SINGLE
     Route: 042
     Dates: start: 20080702, end: 20080702
  20. SOLIRIS [Suspect]
     Dosage: 900 MG, SINGLE
     Route: 042
     Dates: start: 20080716, end: 20080716
  21. PREDNISONE [Suspect]
     Indication: PAROXYSMAL NOCTURNAL HAEMOGLOBINURIA
     Dosage: 10 MG, QOD
     Route: 048
     Dates: end: 20080201
  22. LEVOTHYROXINE SODIUM [Concomitant]
     Indication: HYPOTHYROIDISM
     Dosage: 75 UG, QD
  23. LISINOPRIL [Concomitant]
     Indication: HYPERTENSION
     Dosage: 20 MG, QD
     Route: 048
  24. RANITIDINE [Concomitant]
     Dosage: 300 MG, QOD
     Route: 048
  25. PROTONIX /01263201/ [Concomitant]
     Dosage: 40 MG, QOD
     Route: 048
  26. FOSAMAX [Concomitant]
     Indication: OSTEOPENIA
     Dosage: 70 MG, WEEKLY
     Route: 048
  27. FOLIC ACID [Concomitant]
     Indication: PAROXYSMAL NOCTURNAL HAEMOGLOBINURIA
     Dosage: 2 MG, QD
     Route: 048
  28. SLOW-FE /00023503/ [Concomitant]
     Dosage: 4 TABS, WEEKLY
     Route: 048
  29. CALCIUM WITH VITAMIN D [Concomitant]
     Dosage: 1 TAB, BID
     Route: 048
  30. MULTIVITAMIN /00831701/ [Concomitant]
     Dosage: UNK, QD
     Route: 048
  31. ASPIRIN [Concomitant]
     Dosage: 81 MG, QD
     Route: 048
  32. GLUCOSAMINE [Concomitant]

REACTIONS (4)
  - ARTHRITIS [None]
  - BACK PAIN [None]
  - FATIGUE [None]
  - WHITE BLOOD CELL COUNT DECREASED [None]
